FAERS Safety Report 16790997 (Version 2)
Quarter: 2019Q3

REPORT INFORMATION
  Report Type: Spontaneous
  Country: CA (occurrence: CA)
  Receive Date: 20190910
  Receipt Date: 20190919
  Transmission Date: 20191005
  Serious: Yes (Hospitalization, Other)
  Sender: FDA-Public Use
  Company Number: CA-PFIZER INC-2019387828

PATIENT
  Age: 6 Year
  Sex: Male
  Weight: 23 kg

DRUGS (13)
  1. METHOTREXATE SODIUM. [Suspect]
     Active Substance: METHOTREXATE SODIUM
     Indication: ACUTE LYMPHOCYTIC LEUKAEMIA
     Dosage: 40 MG/M2, UNK
     Route: 042
  2. L-ASPARAGINASE [Concomitant]
     Active Substance: ASPARAGINASE
     Dosage: UNK
  3. VINCRISTINE SULFATE. [Suspect]
     Active Substance: VINCRISTINE SULFATE
     Indication: ACUTE LYMPHOCYTIC LEUKAEMIA
     Dosage: 1.5 MG/M2, UNK
     Route: 042
  4. CYCLOPHOSPHAMIDE. [Suspect]
     Active Substance: CYCLOPHOSPHAMIDE
     Indication: ACUTE LYMPHOCYTIC LEUKAEMIA
     Dosage: 1750 MG/M2, UNK
     Route: 042
  5. FLUDARABINE [Concomitant]
     Active Substance: FLUDARABINE PHOSPHATE
     Dosage: UNK
  6. MERCAPTOPURINE. [Suspect]
     Active Substance: MERCAPTOPURINE
     Indication: ACUTE LYMPHOCYTIC LEUKAEMIA
     Dosage: 65.0 MG/M2, 1X/DAY
     Route: 048
  7. CLOLAR [Concomitant]
     Active Substance: CLOFARABINE
     Dosage: UNK
  8. CYTARABINE. [Concomitant]
     Active Substance: CYTARABINE
     Dosage: UNK
  9. ATRIANCE [Concomitant]
     Active Substance: NELARABINE
     Dosage: UNK
  10. DOXORUBICIN HYDROCHLORIDE INJECTION [Concomitant]
     Active Substance: DOXORUBICIN HYDROCHLORIDE
     Dosage: UNK
  11. ETOPOSIDE. [Suspect]
     Active Substance: ETOPOSIDE
     Indication: ACUTE LYMPHOCYTIC LEUKAEMIA
     Dosage: 150 MG/M2, 1X/DAY
     Route: 042
  12. RAPAMUNE [Suspect]
     Active Substance: SIROLIMUS
     Indication: PROPHYLAXIS AGAINST TRANSPLANT REJECTION
     Dosage: 2.5 MG, 1X/DAY
     Route: 048
  13. CYCLOSPORINE. [Suspect]
     Active Substance: CYCLOSPORINE
     Indication: PROPHYLAXIS AGAINST TRANSPLANT REJECTION
     Dosage: UNK UNK, 1X/DAY
     Route: 048

REACTIONS (3)
  - Product use issue [Unknown]
  - Hepatocellular injury [Unknown]
  - Off label use [Unknown]
